FAERS Safety Report 6337128-5 (Version None)
Quarter: 2009Q3

REPORT INFORMATION
  Report Type: 
  Country: None (occurrence: None)
  Receive Date: 20090831
  Receipt Date: 20090818
  Transmission Date: 20100115
  Serious: Yes (Death, Other)
  Sender: FDA-Public Use
  Company Number: 2009S1000262

PATIENT
  Age: 45 Year
  Sex: Male

DRUGS (2)
  1. ACITRETIN [Suspect]
     Indication: PSORIASIS
     Dosage: 10 MG; QD; PO, 25 MG; QD; PO
     Route: 048
     Dates: start: 20090201, end: 20090501
  2. ACITRETIN [Suspect]
     Indication: PSORIASIS
     Dosage: 10 MG; QD; PO, 25 MG; QD; PO
     Route: 048
     Dates: start: 20090501, end: 20090701

REACTIONS (2)
  - CEREBROVASCULAR ACCIDENT [None]
  - THROMBOTIC THROMBOCYTOPENIC PURPURA [None]
